FAERS Safety Report 6210964-1 (Version None)
Quarter: 2009Q2

REPORT INFORMATION
  Report Type: 
  Country: None (occurrence: None)
  Receive Date: 20090602
  Receipt Date: 20071115
  Transmission Date: 20091009
  Serious: Yes (Other)
  Sender: FDA-Public Use
  Company Number: US-ASTRAZENECA-2006UW24896

PATIENT
  Age: 602 Month
  Sex: Male
  Weight: 92.1 kg

DRUGS (7)
  1. SEROQUEL [Suspect]
     Indication: INSOMNIA
     Route: 048
     Dates: start: 20040101, end: 20060101
  2. SEROQUEL [Suspect]
     Dosage: 25 MG ALTERNATE DAY
     Route: 048
     Dates: start: 20060814
  3. KLONOPIN [Concomitant]
     Dates: start: 20040416
  4. ZOLOFT [Concomitant]
     Dates: start: 20031016
  5. ZESTRIL [Concomitant]
     Dosage: 40 MG ALTERNATE DAY
     Dates: start: 20060814
  6. PROTONIX [Concomitant]
     Indication: DYSPEPSIA
     Dosage: 40 MG ALTERNATE DAY
     Dates: start: 20040416
  7. PRILOSEC [Concomitant]
     Dates: start: 20040416

REACTIONS (2)
  - PANCREATITIS [None]
  - PANCREATITIS ACUTE [None]
